FAERS Safety Report 18366023 (Version 1)
Quarter: 2020Q4

REPORT INFORMATION
  Report Type: Spontaneous
  Country: US (occurrence: US)
  Receive Date: 20201009
  Receipt Date: 20201009
  Transmission Date: 20210114
  Serious: Yes (Death, Hospitalization)
  Sender: FDA-Public Use
  Company Number: US-MACLEODS PHARMACEUTICALS US LTD-MAC2020028315

PATIENT

DRUGS (2)
  1. OLANZAPINE 10 MG [Suspect]
     Active Substance: OLANZAPINE
     Indication: PRODUCT USED FOR UNKNOWN INDICATION
     Dosage: 10 MILLIGRAM, BID
     Route: 051
  2. PAROXETINE. [Suspect]
     Active Substance: PAROXETINE
     Indication: PRODUCT USED FOR UNKNOWN INDICATION
     Dosage: 20 MILLIGRAM, AT BEDTIME
     Route: 065

REACTIONS (7)
  - Hyperpyrexia [Unknown]
  - Mental status changes [Unknown]
  - Hypotension [Fatal]
  - Muscle rigidity [Unknown]
  - Prothrombin time prolonged [Unknown]
  - Tremor [Unknown]
  - Haemorrhage [Fatal]
